FAERS Safety Report 9711364 (Version 1)
Quarter: 2013Q4

REPORT INFORMATION
  Report Type: Spontaneous
  Country: US (occurrence: US)
  Receive Date: 20131126
  Receipt Date: 20131126
  Transmission Date: 20140711
  Serious: No
  Sender: FDA-Public Use
  Company Number: US-BRISTOL-MYERS SQUIBB COMPANY-19209444

PATIENT
  Age: 78 Year
  Sex: Female
  Weight: 86.17 kg

DRUGS (1)
  1. BYETTA [Suspect]
     Indication: TYPE 2 DIABETES MELLITUS
     Dosage: AND DOSE INCREASED TO 5MCG/2/DAY

REACTIONS (4)
  - Blood glucose increased [Recovered/Resolved]
  - Nasopharyngitis [Recovering/Resolving]
  - Increased upper airway secretion [Recovering/Resolving]
  - Vomiting [Unknown]
